FAERS Safety Report 8991105 (Version 1)
Quarter: 2013Q1

REPORT INFORMATION
  Report Type: Spontaneous
  Country: US (occurrence: None)
  Receive Date: 20121227
  Receipt Date: 20121227
  Transmission Date: 20140127
  Serious: Yes (Hospitalization)
  Sender: FDA-Public Use
  Company Number: None

PATIENT
  Age: 76 Year
  Sex: Male
  Weight: 83.92 kg

DRUGS (4)
  1. DOVITINIB [Suspect]
     Dates: start: 20121206, end: 20121222
  2. GEMZAR [Suspect]
     Dosage: 1000 MG/M2/AUC5
     Dates: start: 20121206
  3. CARBOPLATIN [Suspect]
  4. ONDANSETRON [Concomitant]

REACTIONS (2)
  - Febrile neutropenia [None]
  - Decreased appetite [None]
